FAERS Safety Report 13105341 (Version 1)
Quarter: 2017Q1

REPORT INFORMATION
  Report Type: Spontaneous
  Country: US (occurrence: US)
  Receive Date: 20170111
  Receipt Date: 20170111
  Transmission Date: 20170428
  Serious: No
  Sender: FDA-Public Use
  Company Number: US-009507513-1701USA004592

PATIENT
  Sex: Female
  Weight: 55.78 kg

DRUGS (1)
  1. NEXPLANON [Suspect]
     Active Substance: ETONOGESTREL
     Indication: CONTRACEPTION
     Dosage: UNK, FOR 3 YEARS
     Route: 059
     Dates: start: 20140219

REACTIONS (3)
  - Asthenia [Unknown]
  - Muscle spasms [Unknown]
  - Vaginal haemorrhage [Unknown]
